FAERS Safety Report 8604172-4 (Version None)
Quarter: 2012Q3

REPORT INFORMATION
  Report Type: 
  Country: None (occurrence: None)
  Receive Date: 20120820
  Receipt Date: 20120807
  Transmission Date: 20120928
  Serious: Yes (Other)
  Sender: FDA-Public Use
  Company Number: SG-PAR PHARMACEUTICAL, INC-2012SCPR004565

PATIENT

DRUGS (2)
  1. IMIPRAMINE HCL [Suspect]
     Indication: DEPRESSION
     Dosage: 25 MG, ONCE DAILY
     Route: 048
  2. AMLODIPINE [Concomitant]
     Indication: HYPERTENSION
     Dosage: UNK, UNKNOWN
     Route: 065

REACTIONS (2)
  - CATARACT [None]
  - FLOPPY IRIS SYNDROME [None]
